FAERS Safety Report 5571954-5 (Version None)
Quarter: 2007Q4

REPORT INFORMATION
  Report Type: 
  Country: None (occurrence: None)
  Receive Date: 20071221
  Receipt Date: 20071214
  Transmission Date: 20080405
  Serious: Yes (Hospitalization)
  Sender: FDA-Public Use
  Company Number: FR-ABBOTT-02P-056-0201494-00

PATIENT
  Age: 60 Year
  Sex: Female

DRUGS (4)
  1. ZECLAR TABLETS [Suspect]
     Indication: DRUG USE FOR UNKNOWN INDICATION
     Route: 048
     Dates: start: 20020624, end: 20020701
  2. CARBAMAZEPINE [Interacting]
     Indication: EPILEPSY
     Route: 048
  3. CLONAZEPAM [Concomitant]
     Indication: EPILEPSY
     Route: 048
  4. VENLAFAXINE HCL [Concomitant]
     Route: 048

REACTIONS (3)
  - ATAXIA [None]
  - DIZZINESS [None]
  - DRUG INTERACTION [None]
